FAERS Safety Report 9319219 (Version 1)
Quarter: 2013Q2

REPORT INFORMATION
  Report Type: Spontaneous
  Country: US (occurrence: US)
  Receive Date: 20130530
  Receipt Date: 20130530
  Transmission Date: 20140414
  Serious: No
  Sender: FDA-Public Use
  Company Number: US-NOVEN-13US006207

PATIENT
  Age: 36 Year
  Sex: Male
  Weight: 115.65 kg

DRUGS (13)
  1. DAYTRANA [Suspect]
     Dosage: 30 MG FOR 8 HOURS
     Route: 062
     Dates: start: 201201
  2. DAYTRANA [Suspect]
     Dosage: 20 MG, FOR 8 HOURS
     Route: 062
     Dates: start: 201301
  3. DAYTRANA [Suspect]
     Dosage: 30 MG, UNK
     Route: 062
     Dates: start: 201212, end: 201201
  4. REMICADE [Concomitant]
     Indication: CROHN^S DISEASE
     Dosage: 1200 MG, EVERY 6 WEEKS
     Route: 042
  5. IMURAN                             /00001501/ [Concomitant]
     Indication: CROHN^S DISEASE
     Dosage: 350 MG, QD
     Route: 048
  6. LOPERAMIDE [Concomitant]
     Indication: CROHN^S DISEASE
     Dosage: 12 MG, QD
     Route: 048
  7. DIPHENHYDRAMINE [Concomitant]
     Indication: HYPERSENSITIVITY
     Dosage: 50 MG, QD
     Route: 048
  8. ZOLOFT [Concomitant]
     Indication: DEPRESSION
     Dosage: 300 MG, QD
     Route: 048
  9. GABAPENTIN [Concomitant]
     Indication: MIGRAINE
     Dosage: 600 MG, QD
     Route: 048
  10. PROPANOLOL                         /00030001/ [Concomitant]
     Indication: MIGRAINE
     Dosage: 320 MG, QD
     Route: 048
  11. AMITRIPTYLINE [Concomitant]
     Indication: MIGRAINE
     Dosage: 30 MG, QD
     Route: 048
  12. NEXIUM                             /01479302/ [Concomitant]
     Indication: GASTROOESOPHAGEAL REFLUX DISEASE
     Dosage: 80 MG, QD
     Route: 048
  13. ZOFRAN                             /00955301/ [Concomitant]
     Indication: CROHN^S DISEASE
     Dosage: 12 MG, PRN UP TO 12 MG PER DAY
     Route: 048

REACTIONS (7)
  - Drug effect decreased [Unknown]
  - Incorrect drug administration duration [Not Recovered/Not Resolved]
  - Off label use [Not Recovered/Not Resolved]
  - Drug prescribing error [Not Recovered/Not Resolved]
  - Wrong technique in drug usage process [Not Recovered/Not Resolved]
  - Incorrect drug administration duration [Not Recovered/Not Resolved]
  - Product quality issue [Not Recovered/Not Resolved]
